FAERS Safety Report 13259524 (Version 1)
Quarter: 2017Q1

REPORT INFORMATION
  Report Type: Spontaneous
  Country: JP (occurrence: JP)
  Receive Date: 20170222
  Receipt Date: 20170222
  Transmission Date: 20170428
  Serious: Yes (Other)
  Sender: FDA-Public Use
  Company Number: PHJP2017JP003362

PATIENT
  Age: 65 Year
  Sex: Male
  Weight: 65 kg

DRUGS (2)
  1. DISOPYRAMIDE [Interacting]
     Active Substance: DISOPYRAMIDE
     Indication: SUPRAVENTRICULAR TACHYCARDIA
     Dosage: 300 MG, QD
     Route: 048
  2. TEGRETOL [Suspect]
     Active Substance: CARBAMAZEPINE
     Indication: TRIGEMINAL NEURALGIA
     Dosage: 400 MG, QD
     Route: 048

REACTIONS (4)
  - Supraventricular tachycardia [Unknown]
  - Investigation abnormal [Unknown]
  - Dysuria [Unknown]
  - Urinary retention [Unknown]
